FAERS Safety Report 11235159 (Version 1)
Quarter: 2015Q3

REPORT INFORMATION
  Report Type: Spontaneous
  Country: DE (occurrence: DE)
  Receive Date: 20150702
  Receipt Date: 20150702
  Transmission Date: 20151125
  Serious: Yes (Death, Other)
  Sender: FDA-Public Use
  Company Number: PHHY2015DE073522

PATIENT
  Age: 88 Year
  Sex: Female

DRUGS (3)
  1. AZATHIOPRINE. [Suspect]
     Active Substance: AZATHIOPRINE
     Indication: NEUROMYELITIS OPTICA
     Dosage: 2.2 MG/KG (150 MG/D)
     Route: 065
  2. METHYLPREDNISOLONE. [Suspect]
     Active Substance: METHYLPREDNISOLONE
     Indication: NEUROMYELITIS OPTICA
     Dosage: 5 X 1 G
     Route: 065
  3. METHYLPREDNISOLONE. [Suspect]
     Active Substance: METHYLPREDNISOLONE
     Dosage: 5 X 2 G, SECOND CYCLE
     Route: 065

REACTIONS (3)
  - Intestinal haemorrhage [Fatal]
  - Pancytopenia [Unknown]
  - Thrombocytopenia [Unknown]
